FAERS Safety Report 9444577 (Version 1)
Quarter: 2013Q3

REPORT INFORMATION
  Report Type: Spontaneous
  Country: US (occurrence: US)
  Receive Date: 20130807
  Receipt Date: 20130807
  Transmission Date: 20140515
  Serious: No
  Sender: FDA-Public Use
  Company Number: US-PFIZER INC-2013228082

PATIENT
  Age: 66 Year
  Sex: Male
  Weight: 64.85 kg

DRUGS (8)
  1. NEURONTIN [Suspect]
     Indication: POST HERPETIC NEURALGIA
     Dosage: 600 MG, 1X/DAY
     Dates: start: 201307, end: 201307
  2. LYRICA [Suspect]
     Indication: POST HERPETIC NEURALGIA
     Dosage: 75 MG, 1X/DAY
     Route: 048
     Dates: start: 20130727, end: 2013
  3. LYRICA [Suspect]
     Dosage: 75 MG, 2X/DAY
     Route: 048
     Dates: start: 2013
  4. DILAUDID [Suspect]
     Indication: PAIN
     Dosage: 4 MG, AS NEEDED
  5. OXYMORPHONE [Suspect]
     Indication: PAIN
     Dosage: UNK
  6. IMURAN [Concomitant]
     Indication: CROHN^S DISEASE
     Dosage: 50 MG, 1X/DAY
  7. TYLENOL [Concomitant]
     Indication: HEADACHE
     Dosage: UNK, AS NEEDED
  8. VALIUM [Concomitant]
     Indication: SLEEP DISORDER
     Dosage: 10 MG, AS NEEDED

REACTIONS (4)
  - Drug ineffective [Unknown]
  - Somnolence [Unknown]
  - Pruritus [Unknown]
  - Pain [Unknown]
